FAERS Safety Report 8529678-8 (Version None)
Quarter: 2012Q2

REPORT INFORMATION
  Report Type: 
  Country: None (occurrence: None)
  Receive Date: 20120410
  Receipt Date: 20110826
  Transmission Date: 20120825
  Serious: Yes (Hospitalization)
  Sender: FDA-Public Use
  Company Number: 20110622

PATIENT
  Age: 88 Year
  Sex: Male
  Weight: 87.5442 kg

DRUGS (18)
  1. ACCUPRIL [Concomitant]
  2. TRAMADOL HYDROCHLORIDE [Concomitant]
  3. REQUIP [Concomitant]
  4. CRESTOR [Concomitant]
  5. METAROLOL SUCCINATE [Concomitant]
  6. GABAPENTIN [Concomitant]
  7. ASPIR [Concomitant]
  8. PROTONIX [Concomitant]
  9. LUTIEN [Concomitant]
  10. FISH OIL [Concomitant]
  11. FLOMAX [Concomitant]
  12. METAMUCIL-2 [Concomitant]
  13. FUROSEMIDE [Concomitant]
  14. M-VIT [Concomitant]
  15. FLAXSEED [Concomitant]
  16. DEXFERRUM [Suspect]
     Indication: IRON DEFICIENCY ANAEMIA
     Dosage: 25 MG/100 ML NS
     Dates: start: 20110726, end: 20110726
  17. OXAZEPAM [Concomitant]
  18. NITROGLYCERIN [Concomitant]

REACTIONS (1)
  - HYPERSENSITIVITY [None]
